FAERS Safety Report 4438917-4 (Version None)
Quarter: 2004Q3

REPORT INFORMATION
  Report Type: 
  Country: None (occurrence: None)
  Receive Date: 20040831
  Receipt Date: 20040819
  Transmission Date: 20050211
  Serious: Yes (Other)
  Sender: FDA-Public Use
  Company Number: 2004-07-0678

PATIENT

DRUGS (5)
  1. PEG-INTERFERON INJECTABLE [Suspect]
     Indication: HEPATITIS
     Dates: end: 20030701
  2. SYNTHROID [Concomitant]
  3. ACTINAL [Concomitant]
  4. CALCIUM [Concomitant]
  5. PROCRIT [Concomitant]

REACTIONS (7)
  - ANAEMIA [None]
  - EPIGASTRIC DISCOMFORT [None]
  - FATIGUE [None]
  - GASTRIC CANCER [None]
  - GASTRIC ULCER [None]
  - GASTROINTESTINAL DISORDER [None]
  - HUNGER [None]
